FAERS Safety Report 10530825 (Version 2)
Quarter: 2014Q4

REPORT INFORMATION
  Report Type: Spontaneous
  Country: ES (occurrence: ES)
  Receive Date: 20141021
  Receipt Date: 20141031
  Transmission Date: 20150528
  Serious: Yes (Death, Hospitalization)
  Sender: FDA-Public Use
  Company Number: PHHY2014ES134553

PATIENT
  Age: 71 Year
  Sex: Female

DRUGS (10)
  1. ALLOPURINOL. [Suspect]
     Active Substance: ALLOPURINOL
     Indication: HYPERURICAEMIA
     Dosage: 300 MG, QD
     Route: 065
  2. BISOPROLOL [Concomitant]
     Active Substance: BISOPROLOL
     Indication: PRODUCT USED FOR UNKNOWN INDICATION
     Route: 065
  3. DOXAZOSIN [Concomitant]
     Active Substance: DOXAZOSIN\DOXAZOSIN MESYLATE
     Indication: PRODUCT USED FOR UNKNOWN INDICATION
     Route: 065
  4. INSULIN [Concomitant]
     Active Substance: INSULIN NOS
     Indication: PRODUCT USED FOR UNKNOWN INDICATION
     Route: 065
  5. ATORVASTATIN [Concomitant]
     Active Substance: ATORVASTATIN
     Indication: PRODUCT USED FOR UNKNOWN INDICATION
     Route: 065
  6. MANIDIPINE [Concomitant]
     Active Substance: MANIDIPINE
     Indication: PRODUCT USED FOR UNKNOWN INDICATION
     Route: 065
  7. PARICALCITOL. [Concomitant]
     Active Substance: PARICALCITOL
     Indication: PRODUCT USED FOR UNKNOWN INDICATION
     Route: 065
  8. CALCIUM POLYSTYRENE SULPHONATE [Concomitant]
     Indication: PRODUCT USED FOR UNKNOWN INDICATION
     Route: 065
  9. FUROSEMIDE. [Concomitant]
     Active Substance: FUROSEMIDE
     Indication: PRODUCT USED FOR UNKNOWN INDICATION
     Route: 065
  10. ESOMEPRAZOLE [Concomitant]
     Active Substance: ESOMEPRAZOLE
     Indication: PRODUCT USED FOR UNKNOWN INDICATION
     Route: 065

REACTIONS (15)
  - Multi-organ failure [Fatal]
  - Shock [Fatal]
  - Renal failure [Unknown]
  - Pancytopenia [Unknown]
  - Blister [Unknown]
  - Pyrexia [Unknown]
  - Aphthous stomatitis [Unknown]
  - Eye pain [Unknown]
  - Toxic epidermal necrolysis [Unknown]
  - Skin lesion [Recovering/Resolving]
  - Nikolsky^s sign [Unknown]
  - Rash [Unknown]
  - Respiratory failure [Unknown]
  - Pruritus [Unknown]
  - Mucosal inflammation [Unknown]
